FAERS Safety Report 25361563 (Version 1)
Quarter: 2025Q2

REPORT INFORMATION
  Report Type: Spontaneous
  Country: MK (occurrence: MK)
  Receive Date: 20250527
  Receipt Date: 20250527
  Transmission Date: 20250717
  Serious: Yes (Other)
  Sender: SLATE RUN
  Company Number: MK-SLATERUN-2025SRLIT00072

PATIENT
  Age: 31 Year
  Sex: Male

DRUGS (1)
  1. MYCOPHENOLIC ACID [Suspect]
     Active Substance: MYCOPHENOLIC ACID
     Indication: Immunosuppressant drug therapy
     Dosage: 2 X 720 MG/DAY
     Route: 065

REACTIONS (2)
  - Coeliac disease [Recovered/Resolved]
  - Gastrointestinal disorder [Recovered/Resolved]
